APPROVED DRUG PRODUCT: MIDOSTAURIN
Active Ingredient: MIDOSTAURIN
Strength: 25MG
Dosage Form/Route: CAPSULE;ORAL
Application: A216015 | Product #001 | TE Code: AB
Applicant: LUPIN INC
Approved: May 10, 2024 | RLD: No | RS: No | Type: RX